FAERS Safety Report 6205645-4 (Version None)
Quarter: 2009Q2

REPORT INFORMATION
  Report Type: 
  Country: None (occurrence: None)
  Receive Date: 20090527
  Receipt Date: 20090414
  Transmission Date: 20091009
  Serious: No
  Sender: FDA-Public Use
  Company Number: US-ABBOTT-09P-163-0568275-00

PATIENT
  Sex: Male
  Weight: 122.58 kg

DRUGS (4)
  1. SIMCOR [Suspect]
     Indication: BLOOD TRIGLYCERIDES INCREASED
     Dosage: CAN'T RECALL STRENGTH
     Route: 048
  2. SIMCOR [Suspect]
     Indication: HIGH DENSITY LIPOPROTEIN DECREASED
  3. METOPROLOL [Concomitant]
     Indication: HYPERTENSION
     Dosage: CAN'T RECALL STRENGTH
     Route: 048
  4. LISINOPRIL [Concomitant]
     Indication: HYPERTENSION
     Dosage: CAN'T RECALL STRENGTH
     Route: 048

REACTIONS (1)
  - ERECTILE DYSFUNCTION [None]
